FAERS Safety Report 23477490 (Version 2)
Quarter: 2024Q1

REPORT INFORMATION
  Report Type: Report from Study
  Country: US (occurrence: US)
  Receive Date: 20240204
  Receipt Date: 20240227
  Transmission Date: 20240409
  Serious: Yes (Hospitalization)
  Sender: FDA-Public Use
  Company Number: US-ABBVIE-5623620

PATIENT
  Age: 82 Year
  Sex: Female

DRUGS (1)
  1. UBRELVY [Suspect]
     Active Substance: UBROGEPANT
     Indication: Product used for unknown indication
     Route: 048
     Dates: start: 20230701

REACTIONS (3)
  - Wound [Unknown]
  - Skin bacterial infection [Unknown]
  - Skin ulcer [Unknown]

NARRATIVE: CASE EVENT DATE: 20240129
